FAERS Safety Report 6634838-7 (Version None)
Quarter: 2010Q1

REPORT INFORMATION
  Report Type: 
  Country: None (occurrence: None)
  Receive Date: 20100311
  Receipt Date: 20100311
  Transmission Date: 20100710
  Serious: Yes (Other)
  Sender: FDA-Public Use
  Company Number: None

PATIENT
  Age: 36 Year
  Sex: Male
  Weight: 86.1834 kg

DRUGS (1)
  1. ZOLPIDEM TARTRATE [Suspect]
     Indication: INSOMNIA
     Dosage: 10 MG 1 TABLET AT BEDTIM PO
     Route: 048
     Dates: start: 20100106, end: 20100108

REACTIONS (9)
  - AGITATION [None]
  - CONFUSIONAL STATE [None]
  - DELUSION [None]
  - GAIT DISTURBANCE [None]
  - HALLUCINATION [None]
  - INCORRECT DOSE ADMINISTERED [None]
  - PARANOIA [None]
  - SLEEP TALKING [None]
  - SOMNAMBULISM [None]
